FAERS Safety Report 25173795 (Version 1)
Quarter: 2025Q2

REPORT INFORMATION
  Report Type: Spontaneous
  Country: SE (occurrence: SE)
  Receive Date: 20250408
  Receipt Date: 20250408
  Transmission Date: 20250716
  Serious: Yes (Other)
  Sender: MERCK SHARP AND DOHME
  Company Number: None

PATIENT
  Age: 54 Year
  Sex: Male

DRUGS (2)
  1. PEMBROLIZUMAB [Suspect]
     Active Substance: PEMBROLIZUMAB
     Indication: Renal cancer
     Route: 042
     Dates: start: 20231006, end: 20240327
  2. DESLORATADINE [Concomitant]
     Active Substance: DESLORATADINE

REACTIONS (10)
  - Vomiting [Unknown]
  - Glucocorticoid deficiency [Unknown]
  - Anaemia [Unknown]
  - Rash [Unknown]
  - Hypophagia [Unknown]
  - Depressed mood [Unknown]
  - Apathy [Unknown]
  - General physical health deterioration [Unknown]
  - Fatigue [Unknown]
  - Weight decreased [Unknown]

NARRATIVE: CASE EVENT DATE: 20240101
